FAERS Safety Report 20176364 (Version 1)
Quarter: 2021Q4

REPORT INFORMATION
  Report Type: Spontaneous
  Country: US (occurrence: None)
  Receive Date: 20211209
  Receipt Date: 20211209
  Transmission Date: 20220303
  Serious: No
  Sender: FDA-Public Use
  Company Number: None

PATIENT
  Age: 60 Year
  Sex: Female

DRUGS (1)
  1. IVERMECTIN [Suspect]
     Active Substance: IVERMECTIN

REACTIONS (12)
  - Hypertension [None]
  - Blood disorder [None]
  - Liver disorder [None]
  - Acidosis [None]
  - Hyperglycaemia [None]
  - Depressed level of consciousness [None]
  - Confusional state [None]
  - Dysarthria [None]
  - Self-medication [None]
  - Intentional product use issue [None]
  - Diabetic ketoacidosis [None]
  - Encephalopathy [None]
